FAERS Safety Report 7604864-X (Version None)
Quarter: 2011Q3

REPORT INFORMATION
  Report Type: 
  Country: None (occurrence: None)
  Receive Date: 20110712
  Receipt Date: 20110630
  Transmission Date: 20111222
  Serious: Yes (Hospitalization, Other)
  Sender: FDA-Public Use
  Company Number: US-AMGEN-USASP2011031000

PATIENT
  Sex: Female

DRUGS (2)
  1. ENBREL [Suspect]
     Indication: RHEUMATOID ARTHRITIS
     Dosage: UNK
  2. ORENCIA [Concomitant]
     Dosage: UNK

REACTIONS (5)
  - COMA [None]
  - OPTIC NEURITIS [None]
  - FUNGAL INFECTION [None]
  - URINARY TRACT INFECTION [None]
  - MULTIPLE SCLEROSIS [None]
